FAERS Safety Report 8508777 (Version 2)
Quarter: 2015Q1

REPORT INFORMATION
  Report Type: Spontaneous
  Country: US (occurrence: US)
  Receive Date: 20120412
  Receipt Date: 20150210
  Transmission Date: 20150721
  Serious: No
  Sender: FDA-Public Use
  Company Number: US-ASTRAZENECA-2011SE72620

PATIENT
  Age: 50 Year
  Sex: Male

DRUGS (1)
  1. NEXIUM [Suspect]
     Active Substance: ESOMEPRAZOLE MAGNESIUM
     Route: 048

REACTIONS (5)
  - Insomnia [Unknown]
  - Gastrooesophageal reflux disease [Unknown]
  - Choking [Unknown]
  - Dyspepsia [Unknown]
  - Intentional product misuse [Unknown]
